FAERS Safety Report 8109679-4 (Version None)
Quarter: 2012Q1

REPORT INFORMATION
  Report Type: 
  Country: None (occurrence: None)
  Receive Date: 20120202
  Receipt Date: 20120118
  Transmission Date: 20120608
  Serious: No
  Sender: FDA-Public Use
  Company Number: US-AMGEN-USASP2012003689

PATIENT
  Sex: Male

DRUGS (1)
  1. ENBREL [Suspect]
     Indication: PSORIASIS
     Dosage: 50 MG, QWK
     Dates: start: 20050119, end: 20111201

REACTIONS (4)
  - BLOOD CREATININE INCREASED [None]
  - RENAL IMPAIRMENT [None]
  - BLOOD URINE PRESENT [None]
  - BLOOD UREA INCREASED [None]
